FAERS Safety Report 5890438-8 (Version None)
Quarter: 2008Q3

REPORT INFORMATION
  Report Type: 
  Country: None (occurrence: None)
  Receive Date: 20080922
  Receipt Date: 20080909
  Transmission Date: 20090109
  Serious: Yes (Other)
  Sender: FDA-Public Use
  Company Number: GB-RANBAXY-2008RR-17948

PATIENT

DRUGS (2)
  1. AMLODIPINE BASICS 10MG TABLETS [Suspect]
     Dosage: 10 MG, QD
     Route: 050
  2. BENDROFLUMETHIAZIDE [Suspect]
     Route: 050

REACTIONS (1)
  - ABORTION SPONTANEOUS [None]
